FAERS Safety Report 6849081-6 (Version None)
Quarter: 2010Q3

REPORT INFORMATION
  Report Type: 
  Country: None (occurrence: None)
  Receive Date: 20100716
  Receipt Date: 20070926
  Transmission Date: 20110219
  Serious: No
  Sender: FDA-Public Use
  Company Number: US-PFIZER INC-2007082235

PATIENT
  Sex: Male
  Weight: 88.636 kg

DRUGS (3)
  1. CHANTIX [Suspect]
     Indication: SMOKING CESSATION THERAPY
     Dates: start: 20070901
  2. PRILOSEC [Concomitant]
     Indication: GASTROOESOPHAGEAL REFLUX DISEASE
  3. VITAMINS [Concomitant]

REACTIONS (4)
  - ABNORMAL DREAMS [None]
  - DIARRHOEA [None]
  - NAUSEA [None]
  - VOMITING [None]
